FAERS Safety Report 19644913 (Version 1)
Quarter: 2021Q3

REPORT INFORMATION
  Report Type: Spontaneous
  Country: PY (occurrence: PY)
  Receive Date: 20210802
  Receipt Date: 20210802
  Transmission Date: 20211014
  Serious: Yes (Death)
  Sender: FDA-Public Use
  Company Number: PY-ROCHE-2880978

PATIENT
  Age: 59 Year
  Sex: Male

DRUGS (24)
  1. CAPECITABINE. [Suspect]
     Active Substance: CAPECITABINE
     Indication: COLON CANCER
     Route: 048
     Dates: start: 201708
  2. LEUCOVORIN. [Concomitant]
     Active Substance: LEUCOVORIN
     Dosage: 4 CYCLES
     Dates: start: 201902
  3. REGORAFENIB. [Concomitant]
     Active Substance: REGORAFENIB
     Indication: COLON CANCER
  4. OXALIPLATIN. [Concomitant]
     Active Substance: OXALIPLATIN
     Dosage: 8 CYCLES
     Dates: start: 201904
  5. AVASTIN [Suspect]
     Active Substance: BEVACIZUMAB
     Route: 065
     Dates: start: 201909
  6. FLUOROURACIL. [Concomitant]
     Active Substance: FLUOROURACIL
     Indication: COLON CANCER
     Dosage: 12 CYCLES
     Dates: start: 201702
  7. FLUOROURACIL. [Concomitant]
     Active Substance: FLUOROURACIL
     Dosage: 12 CYCLES
     Dates: start: 201805
  8. FLUOROURACIL. [Concomitant]
     Active Substance: FLUOROURACIL
     Dosage: 6 CYCLES
     Dates: start: 202008
  9. OXALIPLATIN. [Concomitant]
     Active Substance: OXALIPLATIN
     Indication: COLON CANCER
     Dosage: 12 CYCLES
     Dates: start: 201702
  10. AVASTIN [Suspect]
     Active Substance: BEVACIZUMAB
     Route: 065
     Dates: start: 201811
  11. FLUOROURACIL. [Concomitant]
     Active Substance: FLUOROURACIL
     Dosage: 4 CYCLES
     Dates: start: 201902
  12. AVASTIN [Suspect]
     Active Substance: BEVACIZUMAB
     Indication: COLON CANCER
     Route: 065
     Dates: start: 201805
  13. AVASTIN [Suspect]
     Active Substance: BEVACIZUMAB
     Route: 065
     Dates: start: 201902
  14. LEUCOVORIN. [Concomitant]
     Active Substance: LEUCOVORIN
     Dosage: 12 CYCLES
     Dates: start: 201909
  15. LEUCOVORIN. [Concomitant]
     Active Substance: LEUCOVORIN
     Dosage: 6 CYCLES
     Dates: start: 202008
  16. FLUOROURACIL. [Concomitant]
     Active Substance: FLUOROURACIL
     Dosage: 8 CYCLES
     Dates: start: 201904
  17. OXALIPLATIN. [Concomitant]
     Active Substance: OXALIPLATIN
     Dosage: 6 CYCLES
     Dates: start: 202008
  18. LEUCOVORIN. [Concomitant]
     Active Substance: LEUCOVORIN
     Dosage: 12 CYCLES
     Dates: start: 201805
  19. LEUCOVORIN. [Concomitant]
     Active Substance: LEUCOVORIN
     Dosage: 8 CYCLES
     Dates: start: 201904
  20. FLUOROURACIL. [Concomitant]
     Active Substance: FLUOROURACIL
     Dosage: 12 CYCLES
     Dates: start: 201909
  21. IRINOTECAN [Concomitant]
     Active Substance: IRINOTECAN
     Indication: COLON CANCER
     Dosage: 12 CYCLES
     Dates: start: 201805
  22. AVASTIN [Suspect]
     Active Substance: BEVACIZUMAB
     Route: 065
     Dates: start: 201904
  23. LEUCOVORIN. [Concomitant]
     Active Substance: LEUCOVORIN
     Indication: COLON CANCER
     Dosage: 12 CYCLES
     Dates: start: 201702
  24. IRINOTECAN [Concomitant]
     Active Substance: IRINOTECAN
     Dosage: 12 CYCLES
     Dates: start: 201909

REACTIONS (1)
  - Death [Fatal]
